FAERS Safety Report 10470744 (Version 3)
Quarter: 2015Q1

REPORT INFORMATION
  Report Type: Spontaneous
  Country: US (occurrence: US)
  Receive Date: 20140923
  Receipt Date: 20150219
  Transmission Date: 20150720
  Serious: Yes (Other)
  Sender: FDA-Public Use
  Company Number: US-GLAXOSMITHKLINE-A1089875A

PATIENT
  Sex: Female

DRUGS (6)
  1. ADVAIR HFA [Suspect]
     Active Substance: FLUTICASONE PROPIONATE\SALMETEROL XINAFOATE
     Indication: CHRONIC OBSTRUCTIVE PULMONARY DISEASE
     Dosage: 250/50 MCG
     Route: 055
  2. BABY ASPIRIN [Concomitant]
     Active Substance: ASPIRIN
  3. IMODIUM [Concomitant]
     Active Substance: LOPERAMIDE HYDROCHLORIDE
  4. VOLTAREN [Concomitant]
     Active Substance: DICLOFENAC SODIUM
  5. BREO ELLIPTA [Suspect]
     Active Substance: FLUTICASONE FUROATE\VILANTEROL TRIFENATATE
     Indication: EMPHYSEMA
     Dosage: UNKNOWN
     Route: 055
     Dates: start: 201405
  6. ALEVE [Concomitant]
     Active Substance: NAPROXEN SODIUM

REACTIONS (13)
  - Product quality issue [Unknown]
  - Oral discomfort [Unknown]
  - Retinal disorder [Not Recovered/Not Resolved]
  - Candida infection [Not Recovered/Not Resolved]
  - Retinal tear [Not Recovered/Not Resolved]
  - Tooth infection [Recovered/Resolved]
  - Vitreous floaters [Not Recovered/Not Resolved]
  - Lymphadenopathy [Recovering/Resolving]
  - Pain in jaw [Recovering/Resolving]
  - Therapeutic response decreased [Unknown]
  - Cataract [Unknown]
  - Muscle spasms [Recovering/Resolving]
  - Local swelling [Recovering/Resolving]

NARRATIVE: CASE EVENT DATE: 2012
